FAERS Safety Report 16930743 (Version 1)
Quarter: 2019Q4

REPORT INFORMATION
  Report Type: Spontaneous
  Country: CH (occurrence: CH)
  Receive Date: 20191017
  Receipt Date: 20191017
  Transmission Date: 20200122
  Serious: Yes (Life-Threatening, Hospitalization)
  Sender: FDA-Public Use
  Company Number: CH-MYLANLABS-2019M1098776

PATIENT
  Sex: Male

DRUGS (8)
  1. EPINEPHRINE. [Suspect]
     Active Substance: EPINEPHRINE
     Dosage: 0.3 MICROG/KG/MIN
     Route: 065
  2. NORADRENALINE                      /00127501/ [Suspect]
     Active Substance: NOREPINEPHRINE
     Indication: VASOPLEGIA SYNDROME
     Dosage: 0.4 MICROG/KG/MIN AND LATER..
     Route: 065
  3. NORADRENALINE                      /00127501/ [Suspect]
     Active Substance: NOREPINEPHRINE
     Dosage: 0.3 MICROG/KG/MIN
     Route: 065
  4. MILRINONE [Suspect]
     Active Substance: MILRINONE
     Indication: VASOPLEGIA SYNDROME
     Dosage: 0.5 MICROG/KG/MIN
     Route: 065
  5. EPINEPHRINE. [Suspect]
     Active Substance: EPINEPHRINE
     Indication: VASOPLEGIA SYNDROME
     Dosage: 0.5 MICROG/KG/MIN; AND LATER AT 0.3 MICROG/KG/MIN
     Route: 065
  6. PIPERACILLIN AND TAZOBACTAM [Concomitant]
     Active Substance: PIPERACILLIN SODIUM\TAZOBACTAM SODIUM
     Indication: ANTIBIOTIC THERAPY
     Route: 065
  7. DOPAMINE [Suspect]
     Active Substance: DOPAMINE HYDROCHLORIDE
     Indication: VASOPLEGIA SYNDROME
     Dosage: 10 MICROG/KG/MIN
     Route: 065
  8. VANCOMYCIN [Concomitant]
     Active Substance: VANCOMYCIN
     Indication: ANTIBIOTIC THERAPY
     Dosage: 1.5 KDA
     Route: 065

REACTIONS (1)
  - Drug ineffective [Unknown]
